FAERS Safety Report 8382753-3 (Version None)
Quarter: 2012Q2

REPORT INFORMATION
  Report Type: 
  Country: None (occurrence: None)
  Receive Date: 20120524
  Receipt Date: 20120517
  Transmission Date: 20120825
  Serious: Yes (Death, Hospitalization)
  Sender: FDA-Public Use
  Company Number: GB-UCBSA-057673

PATIENT
  Age: 64 Year
  Sex: Male
  Weight: 90.7 kg

DRUGS (14)
  1. ASPIRIN [Concomitant]
  2. PERINDOPRIL ERBUMINE [Concomitant]
  3. AMITRIPTYLINE HCL [Concomitant]
  4. FUROSEMIDE [Concomitant]
  5. NAPROXEN [Concomitant]
  6. NICORANDIL [Concomitant]
  7. ATORVASTATIN CALCIUM [Concomitant]
  8. CIMZIA [Suspect]
     Indication: RHEUMATOID ARTHRITIS
     Route: 058
     Dates: start: 20120316, end: 20120316
  9. NITROGLYCERIN [Concomitant]
  10. ACETAMINOPHEN [Concomitant]
  11. PREDNISOLONE [Concomitant]
  12. FOLIC ACID [Concomitant]
  13. METHOTREXATE [Concomitant]
  14. BISOPROLOL FUMARATE [Concomitant]

REACTIONS (5)
  - ISCHAEMIC STROKE [None]
  - DYSPNOEA [None]
  - PNEUMONIA [None]
  - RESPIRATORY DISORDER [None]
  - HEMIPARESIS [None]
